FAERS Safety Report 6295305-6 (Version None)
Quarter: 2009Q3

REPORT INFORMATION
  Report Type: 
  Country: None (occurrence: None)
  Receive Date: 20090803
  Receipt Date: 20090721
  Transmission Date: 20100115
  Serious: Yes (Other)
  Sender: FDA-Public Use
  Company Number: CN-GENENTECH-284125

PATIENT

DRUGS (10)
  1. MABTHERA [Suspect]
     Indication: B-CELL LYMPHOMA
     Route: 065
  2. CYCLOPHOSPHAMIDE [Concomitant]
     Indication: B-CELL LYMPHOMA
  3. DOXORUBICIN HCL [Concomitant]
     Indication: B-CELL LYMPHOMA
  4. VINCRISTINE [Concomitant]
     Indication: B-CELL LYMPHOMA
  5. PREDNISOLONE [Concomitant]
     Indication: B-CELL LYMPHOMA
  6. ETOPOSIDE [Concomitant]
     Indication: B-CELL LYMPHOMA
  7. DEXAMETHASONE [Concomitant]
     Indication: B-CELL LYMPHOMA
  8. IFOSFAMIDE [Concomitant]
     Indication: B-CELL LYMPHOMA
  9. CISPLATIN [Concomitant]
     Indication: B-CELL LYMPHOMA
  10. CYTARABINE [Concomitant]
     Indication: B-CELL LYMPHOMA

REACTIONS (4)
  - DISEASE PROGRESSION [None]
  - FEBRILE NEUTROPENIA [None]
  - LEUKOPENIA [None]
  - THROMBOCYTOPENIA [None]
